FAERS Safety Report 8921731 (Version 1)
Quarter: 2012Q4

REPORT INFORMATION
  Report Type: Report from Study
  Country: JP (occurrence: JP)
  Receive Date: 20121121
  Receipt Date: 20121121
  Transmission Date: 20130627
  Serious: Yes (Other)
  Sender: FDA-Public Use
  Company Number: JP-VERTEX PHARMACEUTICAL INC.-AE-2012-004090

PATIENT
  Age: 53 Year
  Sex: Male

DRUGS (10)
  1. VX-950 (TELAPREVIR) [Suspect]
     Indication: CHRONIC HEPATITIS C
     Dosage: 2250 mg, qd
     Route: 048
     Dates: start: 20111130, end: 20120222
  2. PEGINTERFERON ALFA-2B [Suspect]
     Indication: CHRONIC HEPATITIS C
     Dosage: 1.5 ?g/kg, qw
     Route: 058
     Dates: start: 20111130, end: 20120104
  3. PEGINTERFERON ALFA-2B [Suspect]
     Dosage: 1.2 ?g/kg, qd
     Route: 058
     Dates: start: 20120111, end: 20120507
  4. RIBAVIRIN [Suspect]
     Indication: CHRONIC HEPATITIS C
     Dosage: 800 mg, qd
     Route: 048
     Dates: start: 20111130, end: 20120110
  5. RIBAVIRIN [Suspect]
     Dosage: 600 mg, qd
     Route: 048
     Dates: start: 20120111, end: 20120131
  6. RIBAVIRIN [Suspect]
     Dosage: 400 mg, qd
     Route: 048
     Dates: start: 20120201, end: 20120228
  7. RIBAVIRIN [Suspect]
     Dosage: 200 mg, qd
     Route: 048
     Dates: start: 20120229, end: 20120516
  8. MUCOSTA [Concomitant]
     Dosage: 300 mg, UNK
     Route: 048
  9. SELTOUCH [Concomitant]
     Route: 061
  10. POSTERISAN                         /00028601/ [Concomitant]
     Dosage: UNK
     Route: 061

REACTIONS (1)
  - Retinopathy [Not Recovered/Not Resolved]
